FAERS Safety Report 23820178 (Version 1)
Quarter: 2024Q2

REPORT INFORMATION
  Report Type: Spontaneous
  Country: US (occurrence: None)
  Receive Date: 20240503
  Receipt Date: 20240503
  Transmission Date: 20240716
  Serious: Yes (Death)
  Sender: FDA-Public Use
  Company Number: None

PATIENT
  Age: 77 Year
  Sex: Male
  Weight: 133 kg

DRUGS (1)
  1. PADCEV [Suspect]
     Active Substance: ENFORTUMAB VEDOTIN-EJFV
     Indication: Bladder cancer
     Dosage: 125 MG DAY 1 AND 8 INTRAVENOUS DRIP
     Route: 041
     Dates: start: 20231003, end: 20231010

REACTIONS (8)
  - Dysphagia [None]
  - Hyperglycaemia [None]
  - Respiratory distress [None]
  - Diabetic ketoacidosis [None]
  - Metabolic acidosis [None]
  - Renal failure [None]
  - Lactic acidosis [None]
  - Therapy non-responder [None]

NARRATIVE: CASE EVENT DATE: 20231010
